FAERS Safety Report 7632461-9 (Version None)
Quarter: 2011Q3

REPORT INFORMATION
  Report Type: 
  Country: None (occurrence: None)
  Receive Date: 20110725
  Receipt Date: 20100914
  Transmission Date: 20111222
  Serious: No
  Sender: FDA-Public Use
  Company Number: US-BRISTOL-MYERS SQUIBB COMPANY-15284672

PATIENT
  Age: 71 Year
  Sex: Female
  Weight: 59 kg

DRUGS (7)
  1. PLAVIX [Concomitant]
     Dosage: ALSO TAKEN AT 14-AUG-2010
     Dates: start: 20100706
  2. LISINOPRIL [Concomitant]
  3. TRIAZOLAM [Concomitant]
     Indication: SLEEP DISORDER
  4. ASPIRIN [Concomitant]
     Dates: start: 20100706
  5. ASPIRIN [Concomitant]
  6. COUMADIN [Suspect]
  7. DILTIAZEM HCL [Concomitant]
     Dosage: TAKEN AS LA

REACTIONS (1)
  - PAIN [None]
